FAERS Safety Report 10735083 (Version 7)
Quarter: 2023Q1

REPORT INFORMATION
  Report Type: Report from Study
  Country: NZ (occurrence: NZ)
  Receive Date: 20150124
  Receipt Date: 20230328
  Transmission Date: 20230417
  Serious: Yes (Life-Threatening, Hospitalization, Other)
  Sender: FDA-Public Use
  Company Number: NZ-ABBVIE-15K-118-1333698-00

PATIENT
  Age: 62 Year
  Sex: Female

DRUGS (7)
  1. HUMIRA [Suspect]
     Active Substance: ADALIMUMAB
     Indication: Crohn^s disease
     Route: 058
     Dates: start: 201012
  2. HUMIRA [Suspect]
     Active Substance: ADALIMUMAB
     Route: 058
     Dates: start: 201101, end: 201104
  3. HUMIRA [Suspect]
     Active Substance: ADALIMUMAB
     Route: 058
     Dates: start: 2012, end: 201312
  4. HUMIRA [Suspect]
     Active Substance: ADALIMUMAB
     Route: 058
     Dates: start: 201312, end: 201401
  5. HUMIRA [Suspect]
     Active Substance: ADALIMUMAB
     Route: 058
     Dates: start: 2011, end: 201401
  6. PREDNISOLONE [Suspect]
     Active Substance: PREDNISOLONE
     Indication: Product used for unknown indication
     Dosage: ON AND OFF
     Route: 065
  7. AZATHIOPRINE [Concomitant]
     Active Substance: AZATHIOPRINE
     Indication: Product used for unknown indication

REACTIONS (40)
  - Anxiety [Unknown]
  - Hepatic cirrhosis [Not Recovered/Not Resolved]
  - Hypotonia [Unknown]
  - Skin ulcer [Recovered/Resolved]
  - Syncope [Unknown]
  - Knee operation [Unknown]
  - Hepatic mass [Unknown]
  - Hepatic steatosis [Unknown]
  - Diabetes mellitus [Recovered/Resolved]
  - Tremor [Recovered/Resolved]
  - Hepatic failure [Not Recovered/Not Resolved]
  - Cellulitis [Unknown]
  - Hospitalisation [Unknown]
  - Sepsis [Recovered/Resolved]
  - Dysarthria [Unknown]
  - Ammonia increased [Unknown]
  - Skin discolouration [Unknown]
  - Weight fluctuation [Unknown]
  - Hypotonia [Unknown]
  - Hypotonia [Unknown]
  - Lymphoedema [Unknown]
  - Parkinson^s disease [Unknown]
  - Syncope [Unknown]
  - Syncope [Unknown]
  - Tremor [Unknown]
  - Aspartate aminotransferase increased [Unknown]
  - Alanine aminotransferase increased [Unknown]
  - Gamma-glutamyltransferase increased [Unknown]
  - Neutrophil count abnormal [Unknown]
  - Herpes zoster [Recovered/Resolved]
  - Adverse drug reaction [Unknown]
  - Chest pain [Unknown]
  - Skin infection [Unknown]
  - Drug ineffective [Unknown]
  - Erythema [Recovered/Resolved]
  - Infection [Recovered/Resolved]
  - Hepatic cirrhosis [Unknown]
  - Hepatic enzyme increased [Unknown]
  - Sepsis [Recovered/Resolved]
  - Peripheral swelling [Recovered/Resolved]

NARRATIVE: CASE EVENT DATE: 20110401
